FAERS Safety Report 10347363 (Version 5)
Quarter: 2014Q4

REPORT INFORMATION
  Report Type: Report from Study
  Country: US (occurrence: None)
  Receive Date: 20140725
  Receipt Date: 20141118
  Transmission Date: 20150528
  Serious: Yes (Death, Life-Threatening, Hospitalization)
  Sender: FDA-Public Use
  Company Number: 2447589

PATIENT
  Age: 48 Year
  Sex: Male
  Weight: 93 kg

DRUGS (15)
  1. HYDROCODONE [Suspect]
     Active Substance: HYDROCODONE
     Indication: PRODUCT USED FOR UNKNOWN INDICATION
     Dosage: ?
     Dates: start: 20130712, end: 20130714
  2. METHYLPREDNISOLONE SODIUM SUCCINATE. [Suspect]
     Active Substance: METHYLPREDNISOLONE SODIUM SUCCINATE
  3. BASILIXIMAB [Concomitant]
     Active Substance: BASILIXIMAB
  4. MORPHINE SULFATE INJ, USP (MORPHINE SULPHATE) [Suspect]
     Active Substance: MORPHINE SULFATE
     Indication: PAIN
     Dosage: 2 MG MILLIGRAMS, AS NECESSARY, INTRAVENOUS (NOT OTHERWISE SPECIFIED)?
     Route: 042
     Dates: start: 20130709
  5. ANTITHYMOCYTE IMMUNOGLOBULIN (RABBIT)) [Suspect]
     Active Substance: LAPINE T-LYMPHOCYTE IMMUNE GLOBULIN
     Indication: TRANSPLANT REJECTION
     Route: 042
     Dates: start: 20130712, end: 20130714
  6. PETHIDINE HYDROCHLORIDE [Concomitant]
     Active Substance: MEPERIDINE
  7. INVESTIGATIONAL DRUG [Concomitant]
     Active Substance: INVESTIGATIONAL PRODUCT
  8. BUMETANIDE. [Concomitant]
     Active Substance: BUMETANIDE
  9. CORTICOSTEROID NOS [Concomitant]
     Active Substance: CORTICOSTEROID NOS
  10. INSULIN HUMAN [Concomitant]
     Active Substance: INSULIN HUMAN
  11. PREDNISONE. [Suspect]
     Active Substance: PREDNISONE
     Indication: PRODUCT USED FOR UNKNOWN INDICATION
     Dosage: 20 MG MILLIGRAM(S), 1 DAY, ORAL
     Route: 048
     Dates: start: 20130717
  12. MYCOPHENOLATE SODIUM [Suspect]
     Active Substance: MYCOPHENOLATE SODIUM
     Indication: PRODUCT USED FOR UNKNOWN INDICATION
     Dosage: 1080 MG MILLIGRAM(S), 2 DAY, ORAL
     Route: 048
     Dates: start: 20130717
  13. PANTOPRAZOLE [Concomitant]
     Active Substance: PANTOPRAZOLE SODIUM
  14. HEPARIN SODIUM INJECTION (HEPARIN SODIUM) [Suspect]
     Active Substance: HEPARIN SODIUM
     Indication: HEART VALVE REPLACEMENT
     Route: 041
     Dates: start: 20130710, end: 20130822
  15. TACROLIMUS. [Suspect]
     Active Substance: TACROLIMUS
     Indication: RENAL TRANSPLANT
     Dosage: 0.5 MG, 2 DAY, ORAL
     Route: 048
     Dates: start: 20130709, end: 20130712

REACTIONS (33)
  - Appendicitis [None]
  - Pain [None]
  - Pyelonephritis [None]
  - Acute respiratory failure [None]
  - Decreased appetite [None]
  - Abdominal hernia [None]
  - Renal tubular necrosis [None]
  - Tachycardia [None]
  - Anxiety [None]
  - Transplant failure [None]
  - Sepsis [None]
  - Tachypnoea [None]
  - Acute kidney injury [None]
  - Haemorrhage [None]
  - Haemoglobin decreased [None]
  - Renal transplant failure [None]
  - Complications of transplanted kidney [None]
  - Cholelithiasis [None]
  - Intestinal ischaemia [None]
  - Leukocytosis [None]
  - Hepatic steatosis [None]
  - Intestinal obstruction [None]
  - Septic shock [None]
  - Hypertension [None]
  - Gastrointestinal haemorrhage [None]
  - Peritonitis [None]
  - Haemodialysis [None]
  - Blood potassium increased [None]
  - Pancreatitis [None]
  - Vomiting [None]
  - Renal transplant [None]
  - Intra-abdominal haemorrhage [None]
  - Hepatic function abnormal [None]

NARRATIVE: CASE EVENT DATE: 20130710
